FAERS Safety Report 6158435-5 (Version None)
Quarter: 2009Q2

REPORT INFORMATION
  Report Type: 
  Country: None (occurrence: None)
  Receive Date: 20090417
  Receipt Date: 20090415
  Transmission Date: 20091009
  Serious: Yes (Hospitalization)
  Sender: FDA-Public Use
  Company Number: US-BRISTOL-MYERS SQUIBB COMPANY-14449243

PATIENT
  Age: 68 Year
  Sex: Male
  Weight: 99 kg

DRUGS (17)
  1. CARBOPLATIN [Suspect]
     Indication: LUNG NEOPLASM MALIGNANT
     Dosage: TAKEN ON 10NOV2008 1 DOSAGE FORM=6AUC
     Dates: start: 20081209, end: 20081209
  2. TAXOL [Suspect]
     Indication: LUNG NEOPLASM MALIGNANT
     Dosage: INITIALLY TAKEN ON 10NOV2008
     Dates: start: 20081209, end: 20081209
  3. PREDNISONE [Suspect]
     Dosage: TAKEN AS CONMED FROM 05NOV08
     Route: 048
     Dates: start: 20081111
  4. PERCOCET [Concomitant]
     Indication: PAIN
     Dates: start: 20081105
  5. PLAVIX [Concomitant]
     Indication: PLATELET DISORDER
     Dates: start: 20080819
  6. DILAUDID [Concomitant]
     Indication: PAIN
     Dates: start: 20081112
  7. ACYCLOVIR [Concomitant]
     Dates: start: 20081111, end: 20081125
  8. FENTANYL [Concomitant]
     Indication: PAIN
     Dates: start: 20081118
  9. ALBUTEROL [Concomitant]
     Indication: CHRONIC OBSTRUCTIVE PULMONARY DISEASE
     Dates: start: 20080819
  10. ADVAIR HFA [Concomitant]
     Indication: CHRONIC OBSTRUCTIVE PULMONARY DISEASE
     Dates: start: 20080819
  11. NEURONTIN [Concomitant]
     Indication: NEUROPATHY PERIPHERAL
     Dates: start: 20081118
  12. LISINOPRIL [Concomitant]
     Dates: start: 20080808
  13. LIPITOR [Concomitant]
     Dates: start: 20080819
  14. SPIRIVA [Concomitant]
     Indication: CHRONIC OBSTRUCTIVE PULMONARY DISEASE
     Dates: start: 20080819
  15. COMPAZINE [Concomitant]
     Indication: NAUSEA
     Dates: start: 20081111
  16. NEXIUM [Concomitant]
     Dates: start: 20081007
  17. ASPIRIN [Concomitant]
     Dates: start: 20080819

REACTIONS (1)
  - MENTAL STATUS CHANGES [None]
